FAERS Safety Report 10223631 (Version 2)
Quarter: 2014Q2

REPORT INFORMATION
  Report Type: Report from Study
  Country: FR (occurrence: FR)
  Receive Date: 20140609
  Receipt Date: 20140620
  Transmission Date: 20141212
  Serious: Yes (Hospitalization)
  Sender: FDA-Public Use
  Company Number: FR-ROCHE-1410061

PATIENT
  Age: 59 Year
  Sex: Female
  Weight: 91 kg

DRUGS (10)
  1. PERTUZUMAB [Suspect]
     Indication: BREAST CANCER
     Dosage: LOADING DOSE
     Route: 042
     Dates: start: 20130826, end: 20130826
  2. PERTUZUMAB [Suspect]
     Dosage: LAST DOSE BEFORE SAE WAS GIVEN ON 07/MAY/2014
     Route: 042
     Dates: start: 20130917, end: 20140528
  3. TRASTUZUMAB [Suspect]
     Indication: HER-2 POSITIVE BREAST CANCER
     Dosage: LOADING DOSE
     Route: 042
     Dates: start: 20130827
  4. TRASTUZUMAB [Suspect]
     Dosage: DATE OF LAST DOSE GIVEN PRIOR TO SAE WAS ON 07/MAY/2014
     Route: 042
     Dates: start: 20130917, end: 20140528
  5. CALCIUM D3 [Concomitant]
     Route: 065
     Dates: start: 20130626
  6. TAHOR [Concomitant]
     Route: 065
     Dates: start: 20130626
  7. LEVOTHYROX [Concomitant]
     Route: 065
     Dates: start: 20130626
  8. ATACAND [Concomitant]
     Route: 065
     Dates: start: 20130626
  9. UN-ALFA [Concomitant]
     Route: 065
     Dates: start: 1993
  10. CACIT (FRANCE) [Concomitant]
     Route: 065
     Dates: start: 20130626

REACTIONS (1)
  - Device related infection [Not Recovered/Not Resolved]
